FAERS Safety Report 5711418-9 (Version None)
Quarter: 2008Q2

REPORT INFORMATION
  Report Type: 
  Country: None (occurrence: None)
  Receive Date: 20080421
  Receipt Date: 20080410
  Transmission Date: 20081010
  Serious: Yes (Other)
  Sender: FDA-Public Use
  Company Number: FR-JNJFOC-20071205132

PATIENT
  Sex: Male

DRUGS (6)
  1. SPORANOX [Suspect]
     Route: 048
  2. SPORANOX [Suspect]
     Indication: BRONCHOPULMONARY ASPERGILLOSIS
     Route: 048
  3. ATORVASTATIN CALCIUM [Concomitant]
     Indication: PROPHYLAXIS
     Route: 065
  4. KARDEGIC [Concomitant]
     Indication: STENT PLACEMENT
     Route: 048
  5. SERTRALINE [Concomitant]
     Indication: DEPRESSION
     Route: 048
  6. PRAVASTATIN SODIUM [Concomitant]
     Indication: STENT PLACEMENT
     Route: 048

REACTIONS (5)
  - ALANINE AMINOTRANSFERASE INCREASED [None]
  - ASPARTATE AMINOTRANSFERASE INCREASED [None]
  - CYTOLYTIC HEPATITIS [None]
  - GAMMA-GLUTAMYLTRANSFERASE INCREASED [None]
  - HEPATITIS [None]
